FAERS Safety Report 22394167 (Version 1)
Quarter: 2023Q2

REPORT INFORMATION
  Report Type: Spontaneous
  Country: US (occurrence: None)
  Receive Date: 20230530
  Receipt Date: 20230530
  Transmission Date: 20230721
  Serious: Yes (Hospitalization)
  Sender: FDA-Public Use
  Company Number: None

PATIENT
  Age: 65 Year
  Sex: Female
  Weight: 81.6 kg

DRUGS (2)
  1. LURBINECTEDIN [Suspect]
     Active Substance: LURBINECTEDIN
     Dates: start: 20230209
  2. LURBINECTEDIN [Concomitant]
     Active Substance: LURBINECTEDIN

REACTIONS (5)
  - Fall [None]
  - Head injury [None]
  - Headache [None]
  - Cervical vertebral fracture [None]
  - Delirium [None]

NARRATIVE: CASE EVENT DATE: 20230528
